FAERS Safety Report 6508037-3 (Version None)
Quarter: 2009Q4

REPORT INFORMATION
  Report Type: 
  Country: None (occurrence: None)
  Receive Date: 20091201
  Receipt Date: 20090826
  Transmission Date: 20100525
  Serious: Yes (Hospitalization)
  Sender: FDA-Public Use
  Company Number: 2009-194843-NL

PATIENT
  Age: 31 Year
  Sex: Female
  Weight: 63.9572 kg

DRUGS (4)
  1. NUVARING [Suspect]
     Indication: MENSTRUATION IRREGULAR
     Dosage: 1 DF
     Dates: start: 20080213, end: 20081215
  2. NUVARING [Suspect]
     Indication: METABOLIC DISORDER
     Dosage: 1 DF
     Dates: start: 20080213, end: 20081215
  3. ZYRTEC [Concomitant]
  4. TYLENOL SINUS [Concomitant]

REACTIONS (1)
  - DEEP VEIN THROMBOSIS [None]
